FAERS Safety Report 23471284 (Version 1)
Quarter: 2024Q1

REPORT INFORMATION
  Report Type: Spontaneous
  Country: US (occurrence: US)
  Receive Date: 20240202
  Receipt Date: 20240202
  Transmission Date: 20240410
  Serious: Yes (Hospitalization)
  Sender: FDA-Public Use
  Company Number: US-E2BLSMVVAL-SPO/USA/24/0001774

PATIENT
  Age: 71 Year

DRUGS (2)
  1. CLOZAPINE [Suspect]
     Active Substance: CLOZAPINE
     Indication: Product used for unknown indication
     Dosage: MORNING
     Dates: start: 20211001
  2. CLOZAPINE [Suspect]
     Active Substance: CLOZAPINE
     Dosage: EVENING

REACTIONS (1)
  - Hospitalisation [Unknown]
